FAERS Safety Report 6813132-5 (Version None)
Quarter: 2010Q3

REPORT INFORMATION
  Report Type: 
  Country: None (occurrence: None)
  Receive Date: 20100701
  Receipt Date: 20100624
  Transmission Date: 20110219
  Serious: Yes (Other)
  Sender: FDA-Public Use
  Company Number: AU-PFIZER INC-2010079123

PATIENT
  Sex: Female

DRUGS (3)
  1. CELEBREX [Suspect]
     Indication: SCIATICA
     Dosage: 2 TABLETS IN THE FIRST WEEK
  2. CELEBREX [Suspect]
     Dosage: 1 TABLET ON A FEW DAYS
  3. PANAMAX [Concomitant]
     Dosage: 6 DF A DAY

REACTIONS (3)
  - ABASIA [None]
  - DRUG INEFFECTIVE [None]
  - PAIN [None]
